FAERS Safety Report 7470048-1 (Version None)
Quarter: 2011Q2

REPORT INFORMATION
  Report Type: 
  Country: None (occurrence: None)
  Receive Date: 20110510
  Receipt Date: 20110506
  Transmission Date: 20111010
  Serious: Yes (Other)
  Sender: FDA-Public Use
  Company Number: US-PFIZER INC-2011098120

PATIENT
  Sex: Male
  Weight: 65.76 kg

DRUGS (4)
  1. LIPITOR [Suspect]
     Indication: BLOOD CHOLESTEROL INCREASED
     Dosage: UNK
     Route: 048
  2. CALCIUM WITH VITAMIN D [Concomitant]
     Dosage: UNK
  3. DONEPEZIL HCL [Suspect]
     Indication: DEMENTIA
     Dosage: 23 MG, DAILY
     Dates: start: 20110101, end: 20110401
  4. FISH OIL [Concomitant]
     Dosage: 1200 MG, DAILY

REACTIONS (2)
  - DEMENTIA [None]
  - DYSPHAGIA [None]
